FAERS Safety Report 23158832 (Version 1)
Quarter: 2023Q4

REPORT INFORMATION
  Report Type: Spontaneous
  Country: MY (occurrence: MY)
  Receive Date: 20231108
  Receipt Date: 20231108
  Transmission Date: 20240110
  Serious: Yes (Other)
  Sender: FDA-Public Use
  Company Number: MY-EPICPHARMA-MY-2023EPCLIT01655

PATIENT
  Age: 45 Year
  Sex: Female

DRUGS (1)
  1. GENTAMICIN SULFATE [Suspect]
     Active Substance: GENTAMICIN SULFATE
     Indication: Ear infection
     Route: 001

REACTIONS (1)
  - Vestibular neuronitis [Recovering/Resolving]
